FAERS Safety Report 21387842 (Version 1)
Quarter: 2022Q3

REPORT INFORMATION
  Report Type: Spontaneous
  Country: US (occurrence: None)
  Receive Date: 20220926
  Receipt Date: 20220926
  Transmission Date: 20221027
  Serious: No
  Sender: FDA-Public Use
  Company Number: None

PATIENT
  Age: 63 Year
  Sex: Female
  Weight: 84.82 kg

DRUGS (6)
  1. SEMGLEE (INSULIN GLARGINE) [Suspect]
     Active Substance: INSULIN GLARGINE
     Indication: Type 2 diabetes mellitus
     Dosage: FREQUENCY : DAILY;?
     Route: 058
  2. LEVEMIR [Suspect]
     Active Substance: INSULIN DETEMIR
  3. BASAGLAR [Suspect]
     Active Substance: INSULIN GLARGINE
  4. TRESIBA [Suspect]
     Active Substance: INSULIN DEGLUDEC
  5. FARXIGA [Concomitant]
  6. JANUMET [Concomitant]

REACTIONS (2)
  - Rash [None]
  - Pruritus [None]
